FAERS Safety Report 5164213-6 (Version None)
Quarter: 2006Q4

REPORT INFORMATION
  Report Type: 
  Country: None (occurrence: None)
  Receive Date: 20060918
  Receipt Date: 20050922
  Transmission Date: 20070319
  Serious: Yes (Hospitalization)
  Sender: FDA-Public Use
  Company Number: US-JNJFOC-20050803155

PATIENT
  Age: 26 Year
  Sex: Female
  Weight: 57.6068 kg

DRUGS (9)
  1. TOPAMAX [Suspect]
     Indication: MIGRAINE
     Dosage: SEE IMAGE
     Route: 048
     Dates: start: 20050421, end: 20050501
  2. TOPAMAX [Suspect]
     Indication: MIGRAINE
     Dosage: SEE IMAGE
     Route: 048
     Dates: start: 20050501, end: 20050701
  3. TOPAMAX [Suspect]
     Indication: MIGRAINE
     Dosage: SEE IMAGE
     Route: 048
     Dates: start: 20050527
  4. ALEVE [Concomitant]
  5. PROTONIC (PANTOPRAZOLE) [Concomitant]
  6. LEXAPRO (SSRI) [Concomitant]
  7. ZANAFLEX [Concomitant]
  8. BENADRYL [Concomitant]
  9. ULTRACET [Concomitant]

REACTIONS (1)
  - PANCREATITIS [None]
